FAERS Safety Report 10689848 (Version 1)
Quarter: 2015Q1

REPORT INFORMATION
  Report Type: Report from Study
  Country: US (occurrence: US)
  Receive Date: 20150105
  Receipt Date: 20150105
  Transmission Date: 20150720
  Serious: Yes (Other)
  Sender: FDA-Public Use
  Company Number: US-JNJFOC-20141220760

PATIENT
  Sex: Female
  Weight: 118.39 kg

DRUGS (1)
  1. STELARA [Suspect]
     Active Substance: USTEKINUMAB
     Indication: PSORIASIS
     Route: 058
     Dates: end: 2014

REACTIONS (6)
  - Weight decreased [Not Recovered/Not Resolved]
  - Sinusitis [Unknown]
  - Bladder prolapse [Unknown]
  - Urinary incontinence [Not Recovered/Not Resolved]
  - Psoriatic arthropathy [Unknown]
  - Precancerous cells present [Unknown]

NARRATIVE: CASE EVENT DATE: 2014
